FAERS Safety Report 4565957-7 (Version None)
Quarter: 2005Q1

REPORT INFORMATION
  Report Type: 
  Country: None (occurrence: None)
  Receive Date: 20050128
  Receipt Date: 20050114
  Transmission Date: 20050727
  Serious: Yes (Death)
  Sender: FDA-Public Use
  Company Number: B0364476A

PATIENT
  Age: 20 Year
  Sex: Female

DRUGS (4)
  1. VENTOLIN [Suspect]
  2. EPANUTIN (EPANUTIN) [Suspect]
  3. ACETAMINOPHEN [Suspect]
     Dates: start: 19980901
  4. MEFENAMIC ACID [Suspect]

REACTIONS (8)
  - BLOOD PRESSURE DECREASED [None]
  - CONVULSION [None]
  - ENCEPHALOPATHY [None]
  - HEPATIC FAILURE [None]
  - OVERDOSE [None]
  - OXYGEN SATURATION DECREASED [None]
  - PYREXIA [None]
  - RENAL FAILURE [None]
